FAERS Safety Report 6389213-X (Version None)
Quarter: 2009Q4

REPORT INFORMATION
  Report Type: 
  Country: None (occurrence: None)
  Receive Date: 20091006
  Receipt Date: 20090923
  Transmission Date: 20100525
  Serious: Yes (Hospitalization)
  Sender: FDA-Public Use
  Company Number: PHHO2009US10194

PATIENT
  Sex: Female
  Weight: 52.8 kg

DRUGS (15)
  1. BLINDED NO TREATMENT RECEIVED NOMED [Suspect]
     Indication: PANCREATIC NEUROENDOCRINE TUMOUR
     Dosage: DOUBLE BLIND
     Route: 048
     Dates: start: 20090424, end: 20090713
  2. BLINDED PLACEBO COMP-PLA+ [Suspect]
     Indication: PANCREATIC NEUROENDOCRINE TUMOUR
     Dosage: DOUBLE BLIND
     Route: 048
     Dates: start: 20090424, end: 20090713
  3. BLINDED RAD 666 RAD+TAB+CMAS [Suspect]
     Indication: PANCREATIC NEUROENDOCRINE TUMOUR
     Dosage: DOUBLE BLIND
     Route: 048
     Dates: start: 20090424, end: 20090713
  4. RAD001C [Suspect]
     Indication: PANCREATIC NEUROENDOCRINE TUMOUR
     Dosage: 10 MG/DAY
     Route: 048
     Dates: start: 20090716, end: 20090814
  5. RAD001C [Suspect]
     Dosage: 10 MG/DAY
     Route: 048
     Dates: end: 20090921
  6. COREG [Concomitant]
     Indication: ARRHYTHMIA
  7. DIGOXIN [Concomitant]
     Indication: CARDIAC FAILURE CONGESTIVE
  8. NEXIUM [Concomitant]
  9. VITAMIN D [Concomitant]
  10. VITAMIN B-12 [Concomitant]
  11. ONDANSETRON [Concomitant]
  12. IMODIUM [Concomitant]
  13. OLOPATADINE HYDROCHLORIDE [Concomitant]
     Route: 047
  14. CENTRUM SILVER [Concomitant]
  15. ASPIRIN [Concomitant]

REACTIONS (5)
  - CHEST PAIN [None]
  - MITRAL VALVE INCOMPETENCE [None]
  - MITRAL VALVE PROLAPSE [None]
  - PLEURITIC PAIN [None]
  - SUPRAVENTRICULAR TACHYCARDIA [None]
